FAERS Safety Report 9225840 (Version 3)
Quarter: 2013Q2

REPORT INFORMATION
  Report Type: Report from Study
  Country: US (occurrence: US)
  Receive Date: 20130411
  Receipt Date: 20130531
  Transmission Date: 20140414
  Serious: Yes (Other)
  Sender: FDA-Public Use
  Company Number: US-JNJFOC-20121212070

PATIENT
  Age: 48 Year
  Sex: Female
  Weight: 78.02 kg

DRUGS (29)
  1. REMICADE [Suspect]
     Indication: RHEUMATOID ARTHRITIS
     Route: 042
     Dates: start: 201202, end: 20121117
  2. FENTANYL [Suspect]
     Indication: PAIN
     Route: 062
     Dates: start: 20110523
  3. FENTANYL [Suspect]
     Indication: PAIN
     Route: 062
     Dates: start: 201211
  4. OXYCONTIN [Concomitant]
     Route: 048
  5. LEVOCETIRIZINE [Concomitant]
     Dosage: EVERY EVENING
     Route: 048
  6. LISINOPRIL [Concomitant]
     Indication: BLOOD PRESSURE
     Route: 048
  7. ATENOLOL [Concomitant]
     Indication: HYPERTENSION
     Dosage: PERVIOUSLY REPORTED AS 2 ONCE A DAY
     Route: 048
  8. SERTRALINE [Concomitant]
     Indication: DEPRESSION
     Route: 048
     Dates: start: 20120511
  9. LEVOTHYROXINE [Concomitant]
     Indication: HYPOTHYROIDISM
     Route: 048
     Dates: start: 20120217
  10. FOLIC ACID [Concomitant]
     Indication: ANAEMIA
     Route: 048
     Dates: start: 20110523
  11. TRAZODONE HCL [Concomitant]
     Indication: ANXIETY
     Dosage: THREE TABLETS BY MOUTH AT BED TIME, SOMETIMES ONLY TAKES TWO.
     Route: 048
     Dates: start: 20110523
  12. TRAZODONE HCL [Concomitant]
     Indication: SLEEP DISORDER
     Dosage: THREE TABLETS BY MOUTH AT BED TIME, SOMETIMES ONLY TAKES TWO.
     Route: 048
     Dates: start: 20110523
  13. METHOTREXATE [Concomitant]
     Indication: RHEUMATOID ARTHRITIS
     Dosage: 25MG/ML
     Route: 058
     Dates: start: 20110523
  14. CYCLOBENZAPRINE [Concomitant]
     Indication: MUSCLE SPASMS
     Route: 048
  15. NASONEX [Concomitant]
     Indication: SINUS DISORDER
     Dosage: PREVIOUSLY REPORTED AS 2 TIMES A DAY.
     Route: 045
  16. ROXICODONE [Concomitant]
     Indication: PAIN
     Dosage: FREQUENCY EVERY 4-5 HOURS
     Route: 048
     Dates: start: 2008
  17. PROAIR HFA [Concomitant]
     Indication: LUNG DISORDER
     Dosage: 2 PUFFS EVERY 4 HOURS AS NEEDED
     Route: 055
     Dates: start: 2009
  18. OMEPRAZOLE [Concomitant]
     Indication: GASTROOESOPHAGEAL REFLUX DISEASE
     Dosage: PREVIOUSLY REPORTED AS TABLET.
     Route: 048
     Dates: start: 20110523
  19. ANTARA [Concomitant]
     Indication: BLOOD TRIGLYCERIDES
     Dosage: PREVIOUSLY REPORTED AS TABLET.
     Route: 048
     Dates: start: 20120217
  20. GLYBURIDE [Concomitant]
     Indication: DIABETES MELLITUS
     Dosage: BEFORE MEALS. PREVIOUSLY REPORTED AS 2 ONCE A DAY.
     Route: 048
     Dates: start: 20120217
  21. METFORMIN [Concomitant]
     Indication: DIABETES MELLITUS
     Dosage: WITH MORNING AND EVENING MEALS. PREVIOUSLY REPORTED AS 2 ONCE A DAY.
     Route: 048
     Dates: start: 20100820
  22. CRESTOR [Concomitant]
     Indication: BLOOD CHOLESTEROL
     Dosage: PREVIOUSLY REPORTED AS 5 MG.
     Route: 048
     Dates: start: 20110630
  23. VITAMIN D [Concomitant]
     Dosage: ONCE /TWICE WEEKLY
     Route: 048
  24. TRANSDERM SCOP [Concomitant]
     Dosage: APPLY ONE APTCH BEHIND EAR 24 HOURS BEFORE LEAVING AND CHANGE EVERY THREE DAYS.
     Route: 061
  25. FLEXERIL [Concomitant]
     Route: 048
  26. LORATADINE [Concomitant]
     Route: 048
     Dates: start: 20110523
  27. INFLUENZA VACCINE [Concomitant]
     Route: 065
  28. PNEUMOCOCCAL CONJUGATE VACCINE [Concomitant]
     Route: 030
  29. OXYCODONE [Concomitant]
     Dosage: 2 TABLETS EVERY 4-5 HOURS
     Route: 048
     Dates: start: 20110523

REACTIONS (18)
  - Synovial cyst [Unknown]
  - Benign neoplasm of adrenal gland [Unknown]
  - Neoplasm [Recovering/Resolving]
  - Cervix carcinoma [Unknown]
  - Mass [Unknown]
  - Systemic lupus erythematosus [Unknown]
  - Otitis media [Recovering/Resolving]
  - Pain in extremity [Unknown]
  - Bronchitis [Unknown]
  - Pneumonia [Recovered/Resolved]
  - Sinusitis [Not Recovered/Not Resolved]
  - Depression [Unknown]
  - Immune system disorder [Unknown]
  - Hepatomegaly [Unknown]
  - Nasal turbinate hypertrophy [Unknown]
  - Migraine [Unknown]
  - Anxiety [Unknown]
  - Pilonidal cyst [Unknown]
